FAERS Safety Report 7280321-8 (Version None)
Quarter: 2011Q1

REPORT INFORMATION
  Report Type: 
  Country: None (occurrence: None)
  Receive Date: 20110208
  Receipt Date: 20110203
  Transmission Date: 20110831
  Serious: Yes (Disabling, Other)
  Sender: FDA-Public Use
  Company Number: US-PFIZER INC-2010079679

PATIENT
  Sex: Female

DRUGS (1)
  1. CHANTIX [Suspect]
     Indication: SMOKING CESSATION THERAPY
     Dosage: 1 MG, UNK
     Dates: start: 20070801

REACTIONS (5)
  - BIPOLAR DISORDER [None]
  - SUICIDAL IDEATION [None]
  - DEPRESSION [None]
  - AGGRESSION [None]
  - ANXIETY [None]
